FAERS Safety Report 4968113-3 (Version None)
Quarter: 2006Q2

REPORT INFORMATION
  Report Type: 
  Country: None (occurrence: None)
  Receive Date: 20060405
  Receipt Date: 20060329
  Transmission Date: 20061013
  Serious: Yes (Hospitalization, Other)
  Sender: FDA-Public Use
  Company Number: HQWYE572729MAR06

PATIENT
  Age: 82 Year
  Sex: Female

DRUGS (5)
  1. CORDARONE [Suspect]
     Dosage: 200 MG 1X PER 1 DAY ORAL
     Route: 048
     Dates: end: 20051027
  2. CORDIUM (BEPRIDIL HYDROCHLORIDE MONOHYDRATE,) [Suspect]
     Dosage: 200 MG 1X PER 1 DAY ORAL
     Route: 048
     Dates: end: 20051027
  3. DIGOXIN [Suspect]
     Dosage: 0.125 MG 1X PER 1 DAY ORAL
     Route: 048
     Dates: end: 20051027
  4. TAHOR (ATORVASTATIN) [Concomitant]
  5. ISOSORBIDE MONONITRATE [Concomitant]

REACTIONS (5)
  - BLOOD PRESSURE INCREASED [None]
  - BUNDLE BRANCH BLOCK LEFT [None]
  - DRUG INTERACTION POTENTIATION [None]
  - EPISTAXIS [None]
  - NODAL ARRHYTHMIA [None]
